FAERS Safety Report 6201568-5 (Version None)
Quarter: 2009Q2

REPORT INFORMATION
  Report Type: 
  Country: None (occurrence: None)
  Receive Date: 20090526
  Receipt Date: 20090514
  Transmission Date: 20091009
  Serious: Yes (Other)
  Sender: FDA-Public Use
  Company Number: US-AVENTIS-200915200GDDC

PATIENT
  Age: 73 Year
  Sex: Male

DRUGS (2)
  1. DOCETAXEL [Suspect]
     Route: 042
     Dates: start: 20070810, end: 20070907
  2. CODE UNBROKEN [Suspect]
     Route: 048
     Dates: start: 20070810, end: 20070907

REACTIONS (1)
  - ACUTE LYMPHOCYTIC LEUKAEMIA [None]
